FAERS Safety Report 7821652-X (Version None)
Quarter: 2011Q4

REPORT INFORMATION
  Report Type: 
  Country: None (occurrence: None)
  Receive Date: 20111018
  Receipt Date: 20110816
  Transmission Date: 20120403
  Serious: No
  Sender: FDA-Public Use
  Company Number: US-BAUSCH-2011BL005424

PATIENT
  Age: 78 Year
  Sex: Female
  Weight: 61 kg

DRUGS (2)
  1. LATANOPROST [Suspect]
     Indication: INTRAOCULAR PRESSURE INCREASED
     Route: 047
     Dates: start: 20110413, end: 20110727
  2. XALATAN                                 /SWE/ [Concomitant]
     Indication: INTRAOCULAR PRESSURE INCREASED
     Route: 047

REACTIONS (2)
  - DRUG INEFFECTIVE [None]
  - INTRAOCULAR PRESSURE INCREASED [None]
